FAERS Safety Report 11973042 (Version 1)
Quarter: 2016Q1

REPORT INFORMATION
  Report Type: Spontaneous
  Country: FR (occurrence: FR)
  Receive Date: 20160128
  Receipt Date: 20160128
  Transmission Date: 20160526
  Serious: Yes (Hospitalization, Other)
  Sender: FDA-Public Use
  Company Number: FR-JAZZ-2015-FR-022835

PATIENT
  Age: 16 Year
  Sex: Male

DRUGS (2)
  1. XYREM [Suspect]
     Active Substance: SODIUM OXYBATE
     Indication: PRODUCT USED FOR UNKNOWN INDICATION
     Dosage: 12 TO 16 ML
     Route: 048
     Dates: start: 20150527, end: 20150527
  2. XYREM [Suspect]
     Active Substance: SODIUM OXYBATE
     Dosage: 4 ML, BID
     Route: 048
     Dates: start: 20150528

REACTIONS (4)
  - Toxicity to various agents [Recovered/Resolved]
  - Dyskinesia [Recovered/Resolved]
  - Drug diversion [Recovered/Resolved]
  - Loss of consciousness [Recovered/Resolved]

NARRATIVE: CASE EVENT DATE: 20150527
